FAERS Safety Report 12632613 (Version 2)
Quarter: 2016Q3

REPORT INFORMATION
  Report Type: Spontaneous
  Country: US (occurrence: US)
  Receive Date: 20160808
  Receipt Date: 20160808
  Transmission Date: 20161109
  Serious: No
  Sender: FDA-Public Use
  Company Number: US-BEH-2015056226

PATIENT
  Age: 25 Year
  Sex: Female
  Weight: 112 kg

DRUGS (18)
  1. METFORMIN [Concomitant]
     Active Substance: METFORMIN HYDROCHLORIDE
  2. DIPHENHYDRAMINE. [Concomitant]
     Active Substance: DIPHENHYDRAMINE
  3. EPIPEN [Concomitant]
     Active Substance: EPINEPHRINE
  4. HIZENTRA [Suspect]
     Active Substance: HUMAN IMMUNOGLOBULIN G
     Route: 058
  5. SYNTHROID [Concomitant]
     Active Substance: LEVOTHYROXINE SODIUM
  6. ACETAMINOPHEN. [Concomitant]
     Active Substance: ACETAMINOPHEN
  7. SINGULAIR [Concomitant]
     Active Substance: MONTELUKAST SODIUM
  8. FLORASTOR [Concomitant]
     Active Substance: SACCHAROMYCES CEREVISIAE
  9. LIDOCAINE. [Concomitant]
     Active Substance: LIDOCAINE
  10. VITAMIN B12 [Concomitant]
     Active Substance: CYANOCOBALAMIN
  11. HIZENTRA [Suspect]
     Active Substance: HUMAN IMMUNOGLOBULIN G
     Indication: IMMUNODEFICIENCY COMMON VARIABLE
     Route: 058
  12. HIZENTRA [Suspect]
     Active Substance: HUMAN IMMUNOGLOBULIN G
     Route: 058
  13. PINDOLOL. [Concomitant]
     Active Substance: PINDOLOL
  14. CULTURELLE [Concomitant]
     Active Substance: LACTOBACILLUS RHAMNOSUS
  15. MIRENA [Concomitant]
     Active Substance: LEVONORGESTREL
  16. CURCUMIN [Concomitant]
     Active Substance: CURCUMIN
  17. CLONAZEPAM. [Concomitant]
     Active Substance: CLONAZEPAM
  18. VITAMIN D3 [Concomitant]
     Active Substance: CHOLECALCIFEROL

REACTIONS (1)
  - Wrong technique in product usage process [Unknown]

NARRATIVE: CASE EVENT DATE: 20151124
